FAERS Safety Report 9541121 (Version 3)
Quarter: 2013Q4

REPORT INFORMATION
  Report Type: Spontaneous
  Country: US (occurrence: US)
  Receive Date: 20130923
  Receipt Date: 20131114
  Transmission Date: 20140711
  Serious: Yes (Hospitalization)
  Sender: FDA-Public Use
  Company Number: US-BIOGENIDEC-2013BI088754

PATIENT
  Age: 49 Year
  Sex: Female

DRUGS (4)
  1. AVONEX [Suspect]
     Indication: MULTIPLE SCLEROSIS
     Route: 030
     Dates: start: 20101123, end: 201308
  2. AVONEX [Suspect]
     Indication: MULTIPLE SCLEROSIS
     Route: 030
     Dates: start: 201309
  3. NOVOLOG INSULIN [Concomitant]
     Indication: DIABETES MELLITUS
  4. LANTUS INSULIN [Concomitant]
     Indication: DIABETES MELLITUS

REACTIONS (19)
  - Cerebrovascular accident [Recovered/Resolved]
  - Coronary artery disease [Recovered/Resolved]
  - Infected skin ulcer [Recovered/Resolved]
  - Myocardial infarction [Recovered/Resolved]
  - Cardiac failure congestive [Recovered/Resolved]
  - Anaemia [Not Recovered/Not Resolved]
  - Multiple sclerosis relapse [Recovered/Resolved]
  - Chills [Recovered/Resolved]
  - Type 2 diabetes mellitus [Recovered/Resolved]
  - Blindness [Not Recovered/Not Resolved]
  - Skin ulcer [Not Recovered/Not Resolved]
  - Blood glucose increased [Recovered/Resolved]
  - Memory impairment [Recovered/Resolved]
  - Urine output decreased [Not Recovered/Not Resolved]
  - Asthenia [Recovered/Resolved]
  - Musculoskeletal stiffness [Recovered/Resolved]
  - Influenza like illness [Recovered/Resolved]
  - Bone pain [Recovered/Resolved]
  - Dyspnoea [Recovered/Resolved]
